FAERS Safety Report 13897467 (Version 1)
Quarter: 2017Q3

REPORT INFORMATION
  Report Type: Spontaneous
  Country: US (occurrence: US)
  Receive Date: 20170823
  Receipt Date: 20170823
  Transmission Date: 20171127
  Serious: Yes (Other)
  Sender: FDA-Public Use
  Company Number: US-SA-2016SA224171

PATIENT
  Sex: Female

DRUGS (1)
  1. MULTAQ [Suspect]
     Active Substance: DRONEDARONE
     Route: 065

REACTIONS (5)
  - Fatigue [Unknown]
  - Skin haemorrhage [Unknown]
  - Atrial flutter [Unknown]
  - Rash erythematous [Unknown]
  - Atrial fibrillation [Unknown]
